FAERS Safety Report 6003346-9 (Version None)
Quarter: 2008Q4

REPORT INFORMATION
  Report Type: 
  Country: None (occurrence: None)
  Receive Date: 20081216
  Receipt Date: 20081203
  Transmission Date: 20090506
  Serious: Yes (Hospitalization)
  Sender: FDA-Public Use
  Company Number: CZ-CELGENEUS-217-21880-08100947

PATIENT
  Sex: Female
  Weight: 97 kg

DRUGS (5)
  1. REVLIMID [Suspect]
     Indication: MULTIPLE MYELOMA
     Route: 048
     Dates: start: 20080714
  2. DEXAMETHASONE [Concomitant]
     Indication: MULTIPLE MYELOMA
     Route: 065
     Dates: start: 20080616
  3. HELICID [Concomitant]
     Route: 065
     Dates: start: 20080616
  4. COTRIMOXAZOLE [Concomitant]
     Route: 065
     Dates: start: 20080616
  5. FRAGMIN [Concomitant]
     Indication: THROMBOSIS PROPHYLAXIS
     Route: 058
     Dates: start: 20080714

REACTIONS (1)
  - MASS [None]
